FAERS Safety Report 23587878 (Version 2)
Quarter: 2024Q1

REPORT INFORMATION
  Report Type: Spontaneous
  Country: US (occurrence: US)
  Receive Date: 20240301
  Receipt Date: 20240326
  Transmission Date: 20240409
  Serious: Yes (Hospitalization)
  Sender: FDA-Public Use
  Company Number: US-BEH-2024169289

PATIENT
  Age: 28 Year
  Sex: Female

DRUGS (4)
  1. HUMATE-P [Suspect]
     Active Substance: HUMAN COAGULATION FACTOR VIII/VON WILLEBRAND FACTOR COMPLEX
     Indication: Von Willebrand^s disease
     Dosage: 600 INTERNATIONAL UNIT
     Route: 042
     Dates: start: 202402
  2. HUMATE-P [Suspect]
     Active Substance: HUMAN COAGULATION FACTOR VIII/VON WILLEBRAND FACTOR COMPLEX
     Dosage: 3300 RCOF UNITS (2970-3630), Q12H FOR 10 DAYS POST-OP; SLOWLY WEAN OFF IN 1-3 WEEKS
     Route: 042
     Dates: start: 202402
  3. HUMATE-P [Suspect]
     Active Substance: HUMAN COAGULATION FACTOR VIII/VON WILLEBRAND FACTOR COMPLEX
     Dosage: 3289 RCOF UNITS (2970-3630), Q12H FOR 10 DAYS POST-OP; SLOWLY WEAN OFF IN 1-3 WEEKS
     Route: 065
     Dates: start: 20240220
  4. HUMATE-P [Suspect]
     Active Substance: HUMAN COAGULATION FACTOR VIII/VON WILLEBRAND FACTOR COMPLEX
     Dosage: 3021 RCOF UNITS (2970-3630), Q12H FOR 10 DAYS POST-OP; SLOWLY WEAN OFF IN 1-3 WEEKS
     Route: 065
     Dates: start: 20240220

REACTIONS (1)
  - Thyroidectomy [Unknown]

NARRATIVE: CASE EVENT DATE: 20240201
